FAERS Safety Report 4366011-X (Version None)
Quarter: 2004Q2

REPORT INFORMATION
  Report Type: 
  Country: None (occurrence: None)
  Receive Date: 20040526
  Receipt Date: 20040526
  Transmission Date: 20050107
  Serious: Yes (Other)
  Sender: FDA-Public Use
  Company Number: None

PATIENT
  Sex: Male

DRUGS (1)
  1. MERCAPTOPURINE [Suspect]
     Indication: CROHN'S DISEASE
     Dosage: 75 MG DAILY ORAL
     Route: 048
     Dates: start: 20040301, end: 20040315

REACTIONS (2)
  - CROHN'S DISEASE [None]
  - DISEASE RECURRENCE [None]
